FAERS Safety Report 9621563 (Version 3)
Quarter: 2014Q1

REPORT INFORMATION
  Report Type: Spontaneous
  Country: FR (occurrence: FR)
  Receive Date: 20131015
  Receipt Date: 20140220
  Transmission Date: 20141002
  Serious: Yes (Other)
  Sender: FDA-Public Use
  Company Number: FR-UCBSA-099883

PATIENT
  Age: 75 Year
  Sex: Male
  Weight: 70 kg

DRUGS (4)
  1. CIMZIA [Suspect]
     Indication: RHEUMATOID ARTHRITIS
     Dosage: UNKNOWN DOSE
     Route: 058
     Dates: end: 2013
  2. REMICADE [Concomitant]
     Indication: RHEUMATOID ARTHRITIS
     Dosage: UNKNOWN DOSE
  3. IMETH [Concomitant]
     Indication: RHEUMATOID ARTHRITIS
  4. CORTANCYL [Concomitant]
     Indication: RHEUMATOID ARTHRITIS

REACTIONS (2)
  - Adenocarcinoma of colon [Unknown]
  - Metastases to liver [Unknown]
